FAERS Safety Report 24989635 (Version 1)
Quarter: 2025Q1

REPORT INFORMATION
  Report Type: Spontaneous
  Country: CA (occurrence: CA)
  Receive Date: 20250220
  Receipt Date: 20250220
  Transmission Date: 20250408
  Serious: Yes (Life-Threatening, Hospitalization, Other)
  Sender: SANDOZ
  Company Number: CA-SANDOZ-SDZ2025CA010595

PATIENT
  Sex: Male

DRUGS (43)
  1. ACETAMINOPHEN [Suspect]
     Active Substance: ACETAMINOPHEN
     Indication: Neuralgia
     Dosage: 2600 MG, QD
     Route: 065
  2. ACETAMINOPHEN [Suspect]
     Active Substance: ACETAMINOPHEN
     Indication: Guillain-Barre syndrome
     Dosage: 3900 MG, QD
     Route: 065
  3. ACETAMINOPHEN [Suspect]
     Active Substance: ACETAMINOPHEN
     Indication: Pain
     Route: 065
  4. DICLOFENAC [Suspect]
     Active Substance: DICLOFENAC
     Indication: Neuralgia
     Route: 065
  5. DICLOFENAC [Suspect]
     Active Substance: DICLOFENAC
     Indication: Pain
     Route: 065
  6. DICLOFENAC [Suspect]
     Active Substance: DICLOFENAC
     Indication: Guillain-Barre syndrome
  7. DILAUDID [Suspect]
     Active Substance: HYDROMORPHONE HYDROCHLORIDE
     Indication: Pain
     Dosage: 30 MG, QD
     Route: 065
  8. DILAUDID [Suspect]
     Active Substance: HYDROMORPHONE HYDROCHLORIDE
     Indication: Neuralgia
     Dosage: 7 MG, QD
     Route: 065
  9. DILAUDID [Suspect]
     Active Substance: HYDROMORPHONE HYDROCHLORIDE
     Indication: Guillain-Barre syndrome
     Route: 065
  10. FENTANYL [Suspect]
     Active Substance: FENTANYL
     Indication: Pain
     Dosage: 25 MG, 1 EVERY 1 HOUR
     Route: 065
  11. FENTANYL [Suspect]
     Active Substance: FENTANYL
     Indication: Neuralgia
     Dosage: 37.5 MG, 1 EVERY 1 HOUR
     Route: 065
  12. FENTANYL [Suspect]
     Active Substance: FENTANYL
     Indication: Guillain-Barre syndrome
     Route: 065
  13. GABAPENTIN [Suspect]
     Active Substance: GABAPENTIN
     Indication: Product used for unknown indication
     Dosage: 1200 MG, QD
     Route: 048
  14. GABAPENTIN [Suspect]
     Active Substance: GABAPENTIN
     Indication: Neuralgia
     Dosage: 1800 MG, QD
     Route: 048
  15. GABAPENTIN [Suspect]
     Active Substance: GABAPENTIN
     Dosage: 300 MG, QD
     Route: 065
  16. GABAPENTIN [Suspect]
     Active Substance: GABAPENTIN
     Indication: Acute respiratory failure
     Dosage: 3600 MG, QD
     Route: 048
  17. GABAPENTIN [Suspect]
     Active Substance: GABAPENTIN
     Route: 065
  18. GABAPENTIN [Suspect]
     Active Substance: GABAPENTIN
     Indication: Guillain-Barre syndrome
     Dosage: 900 MG, QD
     Route: 065
  19. HYDROMORPHONE [Suspect]
     Active Substance: HYDROMORPHONE
     Indication: Product used for unknown indication
     Route: 041
  20. HYDROMORPHONE [Suspect]
     Active Substance: HYDROMORPHONE
     Indication: Neuralgia
     Route: 048
  21. HYDROMORPHONE [Suspect]
     Active Substance: HYDROMORPHONE
     Indication: Guillain-Barre syndrome
     Dosage: 7 MG, QD
     Route: 065
  22. IBUPROFEN [Suspect]
     Active Substance: IBUPROFEN
     Indication: Neuralgia
     Dosage: 1600 MG, QD
     Route: 065
  23. IBUPROFEN [Suspect]
     Active Substance: IBUPROFEN
     Indication: Acute respiratory failure
     Route: 065
  24. IBUPROFEN [Suspect]
     Active Substance: IBUPROFEN
     Indication: Guillain-Barre syndrome
     Route: 065
  25. HUMAN IMMUNOGLOBULIN G [Suspect]
     Active Substance: HUMAN IMMUNOGLOBULIN G
     Indication: Guillain-Barre syndrome
     Route: 065
  26. KETAMINE [Suspect]
     Active Substance: KETAMINE
     Indication: Guillain-Barre syndrome
     Dosage: 30 MG, QD
     Route: 042
  27. KETAMINE [Suspect]
     Active Substance: KETAMINE
     Indication: Neuralgia
     Dosage: 40 MG, QD
     Route: 065
  28. LIDOCAINE [Suspect]
     Active Substance: LIDOCAINE
     Indication: Pain
     Dosage: 3.84 MG 1 EVERY 1 HOURS
     Route: 065
  29. LIDOCAINE [Suspect]
     Active Substance: LIDOCAINE
     Indication: Guillain-Barre syndrome
     Route: 065
  30. LIDOCAINE [Suspect]
     Active Substance: LIDOCAINE
     Indication: Neuralgia
     Route: 065
  31. NABILONE [Suspect]
     Active Substance: NABILONE
     Indication: Pain
     Dosage: 2 MG, QD
     Route: 065
  32. NABILONE [Suspect]
     Active Substance: NABILONE
     Indication: Guillain-Barre syndrome
     Dosage: 6 MG, QD
     Route: 065
  33. NABILONE [Suspect]
     Active Substance: NABILONE
     Indication: Neuralgia
     Route: 042
  34. OLANZAPINE [Suspect]
     Active Substance: OLANZAPINE
     Indication: Guillain-Barre syndrome
     Dosage: 2.5 MG, QD
     Route: 065
  35. OLANZAPINE [Suspect]
     Active Substance: OLANZAPINE
     Indication: Neuralgia
     Dosage: 3 MG, QD
     Route: 065
  36. PHENYTOIN [Suspect]
     Active Substance: PHENYTOIN
     Indication: Neuralgia
     Dosage: 1500 MG, QD
     Route: 065
  37. VENLAFAXINE [Suspect]
     Active Substance: VENLAFAXINE HYDROCHLORIDE
     Indication: Neuralgia
     Route: 065
  38. VENLAFAXINE [Suspect]
     Active Substance: VENLAFAXINE HYDROCHLORIDE
     Indication: Guillain-Barre syndrome
  39. ZOPICLONE [Suspect]
     Active Substance: ZOPICLONE
     Indication: Neuralgia
     Route: 065
  40. ZOPICLONE [Suspect]
     Active Substance: ZOPICLONE
     Indication: Guillain-Barre syndrome
     Route: 065
  41. BUPIVACAINE [Concomitant]
     Active Substance: BUPIVACAINE
     Indication: Neuralgia
     Route: 065
  42. MORPHINE [Concomitant]
     Active Substance: MORPHINE
     Indication: Neuralgia
     Route: 065
  43. NORTRIPTYLINE [Concomitant]
     Active Substance: NORTRIPTYLINE
     Indication: Neuralgia
     Route: 065

REACTIONS (2)
  - Inspiratory capacity decreased [Unknown]
  - Off label use [Unknown]
